FAERS Safety Report 23155798 (Version 1)
Quarter: 2023Q4

REPORT INFORMATION
  Report Type: Spontaneous
  Country: US (occurrence: US)
  Receive Date: 20231107
  Receipt Date: 20231107
  Transmission Date: 20240109
  Serious: No
  Sender: FDA-Public Use
  Company Number: US-KARYOPHARM-2023KPT001756

PATIENT

DRUGS (12)
  1. XPOVIO [Suspect]
     Active Substance: SELINEXOR
     Indication: Brain neoplasm malignant
     Dosage: 60 MG, WEEKLY
     Route: 048
     Dates: start: 20230817, end: 20230919
  2. ATORVASTATIN CALCIUM [Concomitant]
     Active Substance: ATORVASTATIN CALCIUM
  3. BACTRIM DS [Concomitant]
     Active Substance: SULFAMETHOXAZOLE\TRIMETHOPRIM
  4. DEXAMETHASONE [Concomitant]
     Active Substance: DEXAMETHASONE
  5. HUMALOG [Concomitant]
     Active Substance: INSULIN LISPRO
  6. KEPPRA [Concomitant]
     Active Substance: LEVETIRACETAM
  7. LANTUS [Concomitant]
     Active Substance: INSULIN GLARGINE
  8. LOSARTAN [Concomitant]
     Active Substance: LOSARTAN
  9. ONDANSETRON [Concomitant]
     Active Substance: ONDANSETRON
  10. TEMOZOLOMIDE [Concomitant]
     Active Substance: TEMOZOLOMIDE
  11. TRAZODONE [Concomitant]
     Active Substance: TRAZODONE HYDROCHLORIDE
  12. VALACYCLOVIR [Concomitant]
     Active Substance: VALACYCLOVIR HYDROCHLORIDE

REACTIONS (2)
  - Off label use [Unknown]
  - No adverse event [Unknown]

NARRATIVE: CASE EVENT DATE: 20230101
